FAERS Safety Report 10290687 (Version 2)
Quarter: 2014Q1

REPORT INFORMATION
  Report Type: Spontaneous
  Country: US (occurrence: None)
  Receive Date: 20120817
  Receipt Date: 20130815
  Transmission Date: 20141002
  Serious: Yes (Hospitalization, Other)
  Sender: FDA-Public Use
  Company Number: ADR-2012-00562

PATIENT
  Sex: Male

DRUGS (4)
  1. BACLOFEN INTRATHECAL [Suspect]
     Indication: PAIN
  2. MORPHINE [Concomitant]
  3. HYDROMORPHONE [Concomitant]
  4. CLONIDINE [Concomitant]

REACTIONS (6)
  - Pain [None]
  - Drug withdrawal syndrome [None]
  - Therapeutic response decreased [None]
  - Implant site pain [None]
  - Malaise [None]
  - Loss of consciousness [None]
